FAERS Safety Report 8115964-2 (Version None)
Quarter: 2012Q1

REPORT INFORMATION
  Report Type: 
  Country: None (occurrence: None)
  Receive Date: 20120206
  Receipt Date: 20120129
  Transmission Date: 20120608
  Serious: Yes (Other)
  Sender: FDA-Public Use
  Company Number: DE-B.I. PHARMACEUTICALS,INC./RIDGEFIELD-2012-DE-00316DE

PATIENT
  Sex: Female
  Weight: 70 kg

DRUGS (5)
  1. NOVALGIN [Suspect]
     Route: 048
  2. ISOSORBIDE DINITRATE [Suspect]
     Dosage: 4 ANZ
     Route: 048
  3. AGGRENOX [Suspect]
     Dosage: 1 ANZ
     Route: 048
  4. NIFEDIPINE [Suspect]
     Dosage: 8 ANZ
     Route: 048
  5. VOLTAREN [Suspect]
     Route: 048

REACTIONS (4)
  - ILL-DEFINED DISORDER [None]
  - MIOSIS [None]
  - SUICIDE ATTEMPT [None]
  - ABDOMINAL DISTENSION [None]
